FAERS Safety Report 6274948-X (Version None)
Quarter: 2009Q3

REPORT INFORMATION
  Report Type: 
  Country: None (occurrence: None)
  Receive Date: 20090717
  Receipt Date: 20090706
  Transmission Date: 20100115
  Serious: Yes (Death, Hospitalization)
  Sender: FDA-Public Use
  Company Number: 2009-02471

PATIENT
  Age: 71 Year
  Sex: Male
  Weight: 105 kg

DRUGS (6)
  1. VELCADE [Suspect]
     Indication: MULTIPLE MYELOMA
     Dosage: 1.3 MG/M2 ; 2 MG
     Dates: start: 20090505, end: 20090606
  2. DEXAMETHASONE [Concomitant]
  3. CODEINE PHOSPHATE AND ACETAMINOPHEN [Concomitant]
  4. DIGOXIN [Concomitant]
  5. SIMVASTATIN [Concomitant]
  6. BISOPROLOL FUMARATE [Concomitant]

REACTIONS (7)
  - ATRIAL FIBRILLATION [None]
  - ATRIAL FLUTTER [None]
  - BUNDLE BRANCH BLOCK LEFT [None]
  - DISEASE PROGRESSION [None]
  - HYPERHIDROSIS [None]
  - MULTIPLE MYELOMA [None]
  - RENAL FAILURE [None]
